FAERS Safety Report 5733164-8 (Version None)
Quarter: 2008Q2

REPORT INFORMATION
  Report Type: 
  Country: None (occurrence: None)
  Receive Date: 20080509
  Receipt Date: 20080501
  Transmission Date: 20081010
  Serious: Yes (Death)
  Sender: FDA-Public Use
  Company Number: US-KINGPHARMUSA00001-K200800507

PATIENT

DRUGS (2)
  1. ALTACE [Suspect]
  2. NORVASC [Concomitant]
     Dates: start: 20010101, end: 20050101

REACTIONS (4)
  - CEREBRAL HAEMORRHAGE [None]
  - FALL [None]
  - GASTROINTESTINAL HAEMORRHAGE [None]
  - LEUKAEMIA [None]
